FAERS Safety Report 4595342-3 (Version None)
Quarter: 2005Q1

REPORT INFORMATION
  Report Type: 
  Country: None (occurrence: None)
  Receive Date: 20050223
  Receipt Date: 20050207
  Transmission Date: 20050727
  Serious: Yes (Hospitalization)
  Sender: FDA-Public Use
  Company Number: S05-ESP-00586-01

PATIENT
  Age: 67 Year
  Sex: Female

DRUGS (3)
  1. SEROPRAM (CITALOPRAM) [Suspect]
     Dosage: 30 MG QD PO
     Route: 048
     Dates: end: 20040526
  2. LORAZEPAM [Suspect]
     Dosage: 2.5 MG QD PO
     Route: 048
     Dates: end: 20040526
  3. GABAPENTIN [Suspect]
     Dosage: 600 MG QD PO
     Route: 048

REACTIONS (1)
  - SPEECH DISORDER [None]
